FAERS Safety Report 6132164-6 (Version None)
Quarter: 2009Q1

REPORT INFORMATION
  Report Type: 
  Country: None (occurrence: None)
  Receive Date: 20090325
  Receipt Date: 20090317
  Transmission Date: 20090719
  Serious: Yes (Other)
  Sender: FDA-Public Use
  Company Number: B0565445A

PATIENT
  Age: 10 Month
  Sex: Male
  Weight: 7 kg

DRUGS (9)
  1. CLAMOXYL [Suspect]
     Dosage: 100MGK PER DAY
     Route: 048
     Dates: start: 20080912, end: 20080916
  2. GENTALLINE [Suspect]
     Dosage: 3MGK PER DAY
     Route: 030
     Dates: start: 20080912, end: 20080916
  3. LASIX [Concomitant]
     Indication: OLIGURIA
     Route: 042
     Dates: start: 20080909, end: 20080915
  4. SUFENTA PRESERVATIVE FREE [Concomitant]
     Indication: SEDATION
     Route: 042
     Dates: start: 20080909
  5. DOBUTREX [Concomitant]
     Indication: HYPOTENSION
     Route: 042
     Dates: start: 20080910, end: 20080915
  6. DIPRIVAN [Concomitant]
     Indication: SEDATION
     Route: 042
     Dates: start: 20080909, end: 20080916
  7. PROTAMINE SULFATE [Concomitant]
     Dates: start: 20080909
  8. FIBRINOGEN [Concomitant]
     Dates: start: 20080909
  9. PERFALGAN [Concomitant]
     Route: 042
     Dates: start: 20080910

REACTIONS (16)
  - CEREBRAL ATROPHY [None]
  - DROOLING [None]
  - HYPERCALCAEMIA [None]
  - HYPERTHERMIA [None]
  - HYPERTONIA [None]
  - HYPONATRAEMIA [None]
  - LIVEDO RETICULARIS [None]
  - MOANING [None]
  - NERVOUS SYSTEM DISORDER [None]
  - PERIPHERAL COLDNESS [None]
  - PERIPHERAL VASCULAR DISORDER [None]
  - POLYURIA [None]
  - SKIN DISCOLOURATION [None]
  - STARING [None]
  - STRABISMUS [None]
  - TREMOR [None]
